FAERS Safety Report 20460647 (Version 1)
Quarter: 2022Q1

REPORT INFORMATION
  Report Type: Spontaneous
  Country: US (occurrence: US)
  Receive Date: 20220211
  Receipt Date: 20220211
  Transmission Date: 20220424
  Serious: Yes (Death, Life-Threatening, Hospitalization)
  Sender: FDA-Public Use
  Company Number: US-Axellia-003956

PATIENT
  Age: 56 Year
  Sex: Male
  Weight: 106.9 kg

DRUGS (1)
  1. VANCOMYCIN [Suspect]
     Active Substance: VANCOMYCIN
     Indication: Peritonitis
     Dosage: STRENGTH: 500MG, 500MG X 4 VIALS ONCE, 2.5% DEXTROSE 2000 ML DIALYSATE SOLUTION
     Route: 033
     Dates: start: 20220125, end: 20220125

REACTIONS (6)
  - Abdominal discomfort [Fatal]
  - Nausea [Fatal]
  - Musculoskeletal stiffness [Fatal]
  - Extremity contracture [Fatal]
  - Foaming at mouth [Fatal]
  - Off label use [Unknown]

NARRATIVE: CASE EVENT DATE: 20220125
